FAERS Safety Report 18567415 (Version 1)
Quarter: 2020Q4

REPORT INFORMATION
  Report Type: Spontaneous
  Country: CN (occurrence: CN)
  Receive Date: 20201201
  Receipt Date: 20201201
  Transmission Date: 20210114
  Serious: Yes (Disabling)
  Sender: FDA-Public Use
  Company Number: CN-BAXTER-2020BAX024170

PATIENT
  Age: 7 Year
  Sex: Female

DRUGS (13)
  1. VINCRISTINE SULFATE. [Suspect]
     Active Substance: VINCRISTINE SULFATE
     Indication: BRAIN NEOPLASM MALIGNANT
     Dosage: DAY 0
     Route: 041
     Dates: start: 20201017, end: 20201017
  2. UROMITEXAN [Suspect]
     Active Substance: MESNA
     Indication: BRAIN NEOPLASM MALIGNANT
     Route: 041
     Dates: start: 20201017, end: 20201018
  3. ENDOXAN [Suspect]
     Active Substance: CYCLOPHOSPHAMIDE
     Dosage: DOSE REINTRODUCED
     Route: 041
  4. ETOPOSIDE. [Suspect]
     Active Substance: ETOPOSIDE
     Indication: BRAIN NEOPLASM MALIGNANT
     Dosage: DAY 0-DAY 2
     Route: 041
     Dates: start: 20201017, end: 20201019
  5. VINCRISTINE SULFATE. [Suspect]
     Active Substance: VINCRISTINE SULFATE
     Dosage: DAY 7
     Route: 041
     Dates: start: 20201024, end: 20201024
  6. VINCRISTINE SULFATE. [Suspect]
     Active Substance: VINCRISTINE SULFATE
     Dosage: DOSE REINTRODUCED
     Route: 041
  7. CISPLATIN. [Suspect]
     Active Substance: CISPLATIN
     Indication: BRAIN NEOPLASM MALIGNANT
     Dosage: DAY 0
     Route: 041
     Dates: start: 20201017, end: 20201017
  8. CISPLATIN. [Suspect]
     Active Substance: CISPLATIN
     Dosage: DOSE REINTRODUCED
     Route: 041
  9. PALONOSETRON HYDROCHLORIDE. [Suspect]
     Active Substance: PALONOSETRON HYDROCHLORIDE
     Dosage: DOSE REINTRODUCED
     Route: 041
  10. ETOPOSIDE. [Suspect]
     Active Substance: ETOPOSIDE
     Dosage: DOSE REINTRODUCED
     Route: 041
  11. PALONOSETRON HYDROCHLORIDE. [Suspect]
     Active Substance: PALONOSETRON HYDROCHLORIDE
     Indication: BRAIN NEOPLASM MALIGNANT
     Route: 041
     Dates: start: 20201017, end: 20201019
  12. UROMITEXAN [Suspect]
     Active Substance: MESNA
     Dosage: DOSE REINTRODUCED
     Route: 041
  13. ENDOXAN [Suspect]
     Active Substance: CYCLOPHOSPHAMIDE
     Indication: BRAIN NEOPLASM MALIGNANT
     Dosage: DAY 1-2
     Route: 041
     Dates: start: 20201018, end: 20201019

REACTIONS (1)
  - Myelosuppression [Recovering/Resolving]

NARRATIVE: CASE EVENT DATE: 20201025
